FAERS Safety Report 22646780 (Version 1)
Quarter: 2023Q2

REPORT INFORMATION
  Report Type: Spontaneous
  Country: US (occurrence: None)
  Receive Date: 20230626
  Receipt Date: 20230626
  Transmission Date: 20230722
  Serious: No
  Sender: FDA-Public Use
  Company Number: None

PATIENT
  Age: 50 Year
  Sex: Female
  Weight: 74.84 kg

DRUGS (1)
  1. BENLYSTA [Suspect]
     Active Substance: BELIMUMAB
     Indication: Systemic lupus erythematosus
     Dosage: OTHER FREQUENCY : EVERY 4 WEEKS ;?
     Route: 042
     Dates: start: 202102

REACTIONS (9)
  - Pain in extremity [None]
  - Neck pain [None]
  - Chest pain [None]
  - Neuralgia [None]
  - Respiratory arrest [None]
  - Inflammation [None]
  - Urinary tract infection [None]
  - Malaise [None]
  - Vomiting [None]
